FAERS Safety Report 6672852-6 (Version None)
Quarter: 2010Q2

REPORT INFORMATION
  Report Type: 
  Country: None (occurrence: None)
  Receive Date: 20100408
  Receipt Date: 20100326
  Transmission Date: 20101027
  Serious: Yes (Life-Threatening, Hospitalization, Disabling, Other)
  Sender: FDA-Public Use
  Company Number: PHEH2009US11451

PATIENT
  Sex: Female
  Weight: 90.703 kg

DRUGS (3)
  1. ZOMETA [Suspect]
     Indication: NEOPLASM MALIGNANT
     Route: 042
  2. PAMIDRONATE DISODIUM [Suspect]
     Indication: MULTIPLE MYELOMA
     Dosage: UNK
  3. CORTICOSTEROIDS [Concomitant]

REACTIONS (12)
  - ABSCESS [None]
  - ABSCESS DRAINAGE [None]
  - BONE DISORDER [None]
  - ENDOTRACHEAL INTUBATION [None]
  - JAW OPERATION [None]
  - ORAL DISORDER [None]
  - OSTEONECROSIS [None]
  - PAIN [None]
  - PURULENCE [None]
  - SOFT TISSUE INFECTION [None]
  - SWELLING [None]
  - TOOTH EXTRACTION [None]
